FAERS Safety Report 12774755 (Version 1)
Quarter: 2016Q3

REPORT INFORMATION
  Report Type: Spontaneous
  Country: US (occurrence: US)
  Receive Date: 20160921
  Receipt Date: 20160921
  Transmission Date: 20161109
  Serious: No
  Sender: FDA-Public Use
  Company Number: None

PATIENT
  Age: 80 Year
  Sex: Male

DRUGS (1)
  1. REPATHA [Suspect]
     Active Substance: EVOLOCUMAB
     Indication: HYPERLIPIDAEMIA
     Dosage: FROM 2 WEEK AGO TO 2 WEEKS AGO (PT ONLY HAD ONE INJECTION) 140MG EVERY 14 DAYS SQ
     Route: 058

REACTIONS (1)
  - Myocardial infarction [None]
